FAERS Safety Report 9908263 (Version 1)
Quarter: 2014Q1

REPORT INFORMATION
  Report Type: Spontaneous
  Country: US (occurrence: None)
  Receive Date: 20140212
  Receipt Date: 20140212
  Transmission Date: 20141002
  Serious: Yes (Other)
  Sender: FDA-Public Use
  Company Number: None

PATIENT
  Age: 59 Year
  Sex: 0

DRUGS (2)
  1. TASIGNA [Suspect]
     Indication: MYELOID LEUKAEMIA
     Route: 048
     Dates: start: 20140118, end: 20140202
  2. TASIGNA [Suspect]
     Indication: LEUKAEMIA
     Route: 048
     Dates: start: 20140118, end: 20140202

REACTIONS (1)
  - Pancreatic disorder [None]
